FAERS Safety Report 8135650-2 (Version None)
Quarter: 2012Q1

REPORT INFORMATION
  Report Type: 
  Country: None (occurrence: None)
  Receive Date: 20120214
  Receipt Date: 20120208
  Transmission Date: 20120608
  Serious: Yes (Other)
  Sender: FDA-Public Use
  Company Number: PHHY2012SE011923

PATIENT
  Sex: Male

DRUGS (9)
  1. BICALUTAMIDE [Concomitant]
  2. VENLAFAXINE [Concomitant]
  3. ENANTONE DEPOT DUAL [Concomitant]
     Dosage: SOLVENT FOR SUSPENSION FOR INJECTION IN PRE-FILLED SYRINGE 30 MG
  4. SIMVASTATIN ARROW [Concomitant]
  5. MIRTAZAPINE [Concomitant]
  6. ZOMETA [Suspect]
     Dosage: 4 MG/ 5 ML
  7. CALCIUM CARBONATE [Concomitant]
     Dosage: 500 MG/400 IE
  8. ASPIRIN [Concomitant]
     Dosage: 75 MG, UNK
  9. PLENDIL [Concomitant]

REACTIONS (1)
  - OSTEONECROSIS [None]
